FAERS Safety Report 6179693-7 (Version None)
Quarter: 2009Q2

REPORT INFORMATION
  Report Type: 
  Country: None (occurrence: None)
  Receive Date: 20090505
  Receipt Date: 20090424
  Transmission Date: 20091009
  Serious: Yes (Hospitalization, Other)
  Sender: FDA-Public Use
  Company Number: US-ELI_LILLY_AND_COMPANY-US200904002981

PATIENT
  Age: 62 Year
  Sex: Female

DRUGS (3)
  1. EVISTA [Suspect]
     Indication: OSTEOPOROSIS
     Dosage: 60 MG, DAILY (1/D)
     Route: 065
     Dates: start: 20000329, end: 20090211
  2. PROVERA [Concomitant]
     Dosage: 2.5 MG, UNKNOWN
     Route: 065
     Dates: start: 19980501, end: 20000329
  3. ORTHO-EST [Concomitant]
     Dosage: 0.625 MG, UNKNOWN
     Route: 065
     Dates: end: 20000329

REACTIONS (2)
  - ENDOMETRIAL CANCER STAGE I [None]
  - POSTMENOPAUSAL HAEMORRHAGE [None]
